FAERS Safety Report 20951035 (Version 1)
Quarter: 2022Q2

REPORT INFORMATION
  Report Type: Spontaneous
  Country: JP (occurrence: JP)
  Receive Date: 20220613
  Receipt Date: 20220613
  Transmission Date: 20220720
  Serious: Yes (Other)
  Sender: FDA-Public Use
  Company Number: JP-PFIZER INC-202200780572

PATIENT
  Sex: Female
  Weight: 69 kg

DRUGS (3)
  1. CISPLATIN [Suspect]
     Active Substance: CISPLATIN
  2. GEMCITABINE HYDROCHLORIDE [Suspect]
     Active Substance: GEMCITABINE HYDROCHLORIDE
  3. PEMETREXED [Suspect]
     Active Substance: PEMETREXED

REACTIONS (1)
  - Reversible cerebral vasoconstriction syndrome [Unknown]
